FAERS Safety Report 5096861-6 (Version None)
Quarter: 2006Q3

REPORT INFORMATION
  Report Type: 
  Country: None (occurrence: None)
  Receive Date: 20060901
  Receipt Date: 20060901
  Transmission Date: 20061208
  Serious: Yes (Hospitalization)
  Sender: FDA-Public Use
  Company Number: None

PATIENT
  Sex: Male
  Weight: 76.2 kg

DRUGS (1)
  1. GLEEVEC [Suspect]
     Dosage: 5600 MG SEE IMAGE

REACTIONS (5)
  - ABSCESS [None]
  - FEBRILE NEUTROPENIA [None]
  - INCORRECT DOSE ADMINISTERED [None]
  - NASOPHARYNGEAL DISORDER [None]
  - PANCYTOPENIA [None]
